FAERS Safety Report 15306450 (Version 1)
Quarter: 2018Q3

REPORT INFORMATION
  Report Type: Spontaneous
  Country: US (occurrence: US)
  Receive Date: 20180810
  Receipt Date: 20180810
  Transmission Date: 20181010
  Serious: No
  Sender: FDA-Public Use
  Company Number: None

PATIENT
  Age: 33 Year
  Sex: Female

DRUGS (1)
  1. MAVYRET [Suspect]
     Active Substance: GLECAPREVIR\PIBRENTASVIR
     Indication: CHRONIC HEPATITIS C
     Dosage: 3 TABS DAIL ORAL
     Route: 048
     Dates: start: 20180720, end: 20180810

REACTIONS (5)
  - Dyspnoea [None]
  - Nausea [None]
  - Pain [None]
  - Fatigue [None]
  - Bone pain [None]

NARRATIVE: CASE EVENT DATE: 20180810
